FAERS Safety Report 11416873 (Version 1)
Quarter: 2015Q3

REPORT INFORMATION
  Report Type: Spontaneous
  Country: US (occurrence: US)
  Receive Date: 20150825
  Receipt Date: 20150825
  Transmission Date: 20151125
  Serious: Yes (Other)
  Sender: FDA-Public Use
  Company Number: US-ELI_LILLY_AND_COMPANY-US201508004668

PATIENT
  Sex: Male

DRUGS (1)
  1. EFFIENT [Suspect]
     Active Substance: PRASUGREL HYDROCHLORIDE
     Indication: PRODUCT USED FOR UNKNOWN INDICATION
     Dosage: UNK, UNKNOWN
     Route: 065

REACTIONS (9)
  - Swelling [Unknown]
  - Nausea [Unknown]
  - Speech disorder [Unknown]
  - Food aversion [Unknown]
  - Dizziness [Unknown]
  - Haemorrhage [Unknown]
  - Chest pain [Unknown]
  - Decreased appetite [Unknown]
  - Headache [Unknown]

NARRATIVE: CASE EVENT DATE: 20150812
